FAERS Safety Report 5502014-7 (Version None)
Quarter: 2007Q4

REPORT INFORMATION
  Report Type: 
  Country: None (occurrence: None)
  Receive Date: 20071030
  Receipt Date: 20071022
  Transmission Date: 20080405
  Serious: Yes (Hospitalization)
  Sender: FDA-Public Use
  Company Number: B0493056A

PATIENT
  Age: 19 Year
  Sex: Male

DRUGS (1)
  1. MALARONE [Suspect]
     Indication: MALARIA PROPHYLAXIS
     Route: 048

REACTIONS (6)
  - APHTHOUS STOMATITIS [None]
  - CONJUNCTIVITIS [None]
  - COUGH [None]
  - DEHYDRATION [None]
  - ILL-DEFINED DISORDER [None]
  - MALAISE [None]
